FAERS Safety Report 4955379-9 (Version None)
Quarter: 2006Q1

REPORT INFORMATION
  Report Type: 
  Country: None (occurrence: None)
  Receive Date: 20060328
  Receipt Date: 20060317
  Transmission Date: 20060701
  Serious: Yes (Other)
  Sender: FDA-Public Use
  Company Number: PHRM2006FR01133

PATIENT
  Age: 24 Year
  Sex: Female

DRUGS (5)
  1. BENZODIAZEPINES [Concomitant]
  2. PARKINANE [Concomitant]
  3. ETHINYL ESTRADIOL AND LEVONORGESTREL [Concomitant]
  4. LEPTICUR [Concomitant]
  5. CLOZAPINE [Suspect]
     Dosage: 700 MG DAILY
     Route: 048
     Dates: end: 20060301

REACTIONS (5)
  - ALANINE AMINOTRANSFERASE INCREASED [None]
  - ASPARTATE AMINOTRANSFERASE INCREASED [None]
  - BLOOD FIBRINOGEN INCREASED [None]
  - CYTOLYTIC HEPATITIS [None]
  - GAMMA-GLUTAMYLTRANSFERASE INCREASED [None]
